FAERS Safety Report 4704262-2 (Version None)
Quarter: 2005Q2

REPORT INFORMATION
  Report Type: 
  Country: None (occurrence: None)
  Receive Date: 20050630
  Receipt Date: 20050616
  Transmission Date: 20051028
  Serious: Yes (Hospitalization)
  Sender: FDA-Public Use
  Company Number: 2005AP03335

PATIENT
  Age: 14 Year
  Sex: Male

DRUGS (5)
  1. SEROQUEL [Suspect]
     Indication: BIPOLAR I DISORDER
     Route: 048
     Dates: start: 20050518, end: 20050525
  2. VALPROATE SODIUM [Suspect]
     Route: 048
     Dates: start: 20050518, end: 20050525
  3. HALOPERIDOL [Concomitant]
     Route: 048
  4. ARTANE [Concomitant]
     Route: 048
  5. ROHYPNOL [Concomitant]
     Route: 048

REACTIONS (2)
  - HYPERAMMONAEMIA [None]
  - LOSS OF CONSCIOUSNESS [None]
